FAERS Safety Report 18219912 (Version 1)
Quarter: 2020Q3

REPORT INFORMATION
  Report Type: Spontaneous
  Country: CA (occurrence: CA)
  Receive Date: 20200901
  Receipt Date: 20200901
  Transmission Date: 20201103
  Serious: Yes (Other)
  Sender: FDA-Public Use
  Company Number: CA-ASTRAZENECA-2020SF08718

PATIENT
  Age: 54 Year
  Sex: Male

DRUGS (12)
  1. CLONAZEPAM. [Interacting]
     Active Substance: CLONAZEPAM
     Indication: BIPOLAR DISORDER
     Dosage: UNKNOWN
     Route: 065
  2. SERTRALINE [Interacting]
     Active Substance: SERTRALINE HYDROCHLORIDE
     Indication: BIPOLAR DISORDER
     Dosage: UNKNOWN
     Route: 065
  3. ZOPICLONE [Interacting]
     Active Substance: ZOPICLONE
     Indication: BIPOLAR DISORDER
     Dosage: UNKNOWN
     Route: 065
  4. T?20 [Concomitant]
     Active Substance: ENFUVIRTIDE
  5. SUSTIVA [Interacting]
     Active Substance: EFAVIRENZ
     Indication: PRODUCT USED FOR UNKNOWN INDICATION
     Dosage: 400.0MG UNKNOWN
     Route: 065
  6. BUPROPION. [Interacting]
     Active Substance: BUPROPION
     Indication: BIPOLAR DISORDER
     Dosage: UNKNOWN
     Route: 065
  7. KALETRA [Interacting]
     Active Substance: LOPINAVIR\RITONAVIR
     Indication: HIV INFECTION
     Dosage: UNKNOWN
     Route: 065
  8. VALPROIC ACID. [Interacting]
     Active Substance: VALPROIC ACID
     Indication: BIPOLAR DISORDER
     Route: 065
  9. QUETIAPINE. [Suspect]
     Active Substance: QUETIAPINE
     Indication: BIPOLAR DISORDER
     Dosage: UNKNOWN
     Route: 048
  10. RALTEGRAVIR POTASSIUM [Interacting]
     Active Substance: RALTEGRAVIR POTASSIUM
     Indication: HIV INFECTION
     Route: 048
  11. ATAZANAVIR. [Interacting]
     Active Substance: ATAZANAVIR
     Indication: HIV INFECTION
     Dosage: UNKNOWN
     Route: 065
  12. LAMIVUDINE. [Interacting]
     Active Substance: LAMIVUDINE
     Indication: HIV INFECTION
     Dosage: UNKNOWN
     Route: 065

REACTIONS (2)
  - Drug interaction [Recovered/Resolved]
  - Depression [Recovered/Resolved]
